FAERS Safety Report 19087801 (Version 4)
Quarter: 2021Q3

REPORT INFORMATION
  Report Type: Report from Study
  Country: US (occurrence: US)
  Receive Date: 20210402
  Receipt Date: 20210713
  Transmission Date: 20211014
  Serious: Yes (Other)
  Sender: FDA-Public Use
  Company Number: US-SEATTLE GENETICS-2021SGN01181

PATIENT
  Age: 40 Year
  Sex: Female

DRUGS (1)
  1. TUCATINIB [Suspect]
     Active Substance: TUCATINIB
     Indication: PRODUCT USED FOR UNKNOWN INDICATION
     Dosage: 50 MG
     Dates: end: 20210130

REACTIONS (3)
  - Brain operation [Unknown]
  - Product dose omission issue [Unknown]
  - Surgery [Unknown]

NARRATIVE: CASE EVENT DATE: 20210130
